FAERS Safety Report 17151014 (Version 2)
Quarter: 2020Q2

REPORT INFORMATION
  Report Type: Spontaneous
  Country: JP (occurrence: JP)
  Receive Date: 20191213
  Receipt Date: 20200410
  Transmission Date: 20200713
  Serious: Yes (Life-Threatening, Hospitalization, Other)
  Sender: FDA-Public Use
  Company Number: JP-GLAXOSMITHKLINE-JP2019GSK213203

PATIENT
  Age: 43 Year
  Sex: Female
  Weight: 81 kg

DRUGS (5)
  1. RISPERIDONE. [Suspect]
     Active Substance: RISPERIDONE
     Indication: PRODUCT USED FOR UNKNOWN INDICATION
     Dosage: 48 MG
     Route: 048
  2. LAMOTRIGINE. [Suspect]
     Active Substance: LAMOTRIGINE
     Indication: PRODUCT USED FOR UNKNOWN INDICATION
     Dosage: 15360 MG
     Route: 048
  3. IBUPROFEN. [Suspect]
     Active Substance: IBUPROFEN
     Indication: PRODUCT USED FOR UNKNOWN INDICATION
     Dosage: 28800 MG
     Route: 048
  4. CAFFEINE. [Suspect]
     Active Substance: CAFFEINE
     Indication: PRODUCT USED FOR UNKNOWN INDICATION
     Dosage: 15360 MG
     Route: 048
  5. AMITRIPTYLINE [Suspect]
     Active Substance: AMITRIPTYLINE
     Indication: PRODUCT USED FOR UNKNOWN INDICATION
     Dosage: 2500 MG
     Route: 048

REACTIONS (23)
  - Suicide attempt [Unknown]
  - Tremor [Unknown]
  - Tachycardia [Unknown]
  - Rhabdomyolysis [Unknown]
  - Cardiac arrest [Recovered/Resolved]
  - Shock [Unknown]
  - Hyperlactacidaemia [Unknown]
  - Atrial fibrillation [Recovered/Resolved]
  - Blood caffeine increased [Unknown]
  - Hypokalaemia [Recovered/Resolved]
  - Toxicity to various agents [Unknown]
  - Mental status changes [Unknown]
  - Torsade de pointes [Unknown]
  - Monoplegia [Recovered/Resolved]
  - Overdose [Unknown]
  - Renal tubular acidosis [Unknown]
  - Ventricular fibrillation [Recovered/Resolved]
  - Hyperhidrosis [Unknown]
  - Arrhythmia [Recovered/Resolved]
  - Metabolic acidosis [Unknown]
  - Loss of consciousness [Unknown]
  - Acute kidney injury [Recovered/Resolved]
  - Blood creatinine increased [Recovered/Resolved]
